FAERS Safety Report 8491560-2 (Version None)
Quarter: 2012Q3

REPORT INFORMATION
  Report Type: 
  Country: None (occurrence: None)
  Receive Date: 20120706
  Receipt Date: 20120629
  Transmission Date: 20120928
  Serious: Yes (Hospitalization)
  Sender: FDA-Public Use
  Company Number: US-JNJFOC-20120203124

PATIENT
  Age: 30 Year
  Sex: Female
  Weight: 116.5 kg

DRUGS (1)
  1. PARACETAMOL/DIPHENHYDRAMINE HCL [Suspect]
     Indication: PRODUCT USED FOR UNKNOWN INDICATION
     Dosage: ABOUT 100 PILLS
     Route: 048
     Dates: start: 20120101, end: 20120101

REACTIONS (5)
  - INTENTIONAL OVERDOSE [None]
  - SOMNOLENCE [None]
  - INTENTIONAL SELF-INJURY [None]
  - VOMITING [None]
  - ABDOMINAL PAIN [None]
